FAERS Safety Report 15501885 (Version 1)
Quarter: 2018Q4

REPORT INFORMATION
  Report Type: Spontaneous
  Country: US (occurrence: US)
  Receive Date: 20181015
  Receipt Date: 20181015
  Transmission Date: 20190205
  Serious: No
  Sender: FDA-Public Use
  Company Number: US-AMGEN-USASP2018058494

PATIENT
  Age: 18 Year
  Sex: Female

DRUGS (2)
  1. EPOGEN [Suspect]
     Active Substance: ERYTHROPOIETIN
     Indication: ANAEMIA OF CHRONIC DISEASE
     Dosage: UNK, QWK
     Route: 065
     Dates: start: 201801, end: 2018
  2. EPOGEN [Suspect]
     Active Substance: ERYTHROPOIETIN
     Dosage: 0.2 ML (4000 UNITS), Q2WK (EVERY MONDAY AND THURSDAY) (1 EPOGEN 20,000 UNITS/ML)
     Route: 065
     Dates: start: 2018

REACTIONS (1)
  - Underdose [Unknown]

NARRATIVE: CASE EVENT DATE: 20180426
